FAERS Safety Report 5056143-5 (Version None)
Quarter: 2006Q3

REPORT INFORMATION
  Report Type: 
  Country: None (occurrence: None)
  Receive Date: 20060717
  Receipt Date: 20060629
  Transmission Date: 20061208
  Serious: Yes (Death)
  Sender: FDA-Public Use
  Company Number: LB-2006-017164

PATIENT
  Age: 66 Year
  Sex: Male

DRUGS (2)
  1. FLUDARA [Suspect]
     Indication: CHRONIC LYMPHOCYTIC LEUKAEMIA
     Dosage: 25 MG/M2, 1X/DAY, INTRAVENOUS
     Route: 042
     Dates: start: 20060527, end: 20060529
  2. CYCLOPHOSPHAMIDE [Concomitant]

REACTIONS (12)
  - BLOOD CREATININE INCREASED [None]
  - BLOOD LACTATE DEHYDROGENASE INCREASED [None]
  - BLOOD POTASSIUM INCREASED [None]
  - BLOOD UREA INCREASED [None]
  - BLOOD URIC ACID INCREASED [None]
  - CARDIAC ARREST [None]
  - HAEMATOCRIT DECREASED [None]
  - HAEMOGLOBIN DECREASED [None]
  - MEAN CELL VOLUME INCREASED [None]
  - PLATELET COUNT DECREASED [None]
  - TUMOUR LYSIS SYNDROME [None]
  - WHITE BLOOD CELL COUNT INCREASED [None]
